FAERS Safety Report 5658504-X (Version None)
Quarter: 2008Q1

REPORT INFORMATION
  Report Type: 
  Country: None (occurrence: None)
  Receive Date: 20080310
  Receipt Date: 20070328
  Transmission Date: 20080703
  Serious: No
  Sender: FDA-Public Use
  Company Number: US-BAYER-200710594BCC

PATIENT
  Age: 61 Year
  Sex: Male
  Weight: 118 kg

DRUGS (4)
  1. ALEVE [Suspect]
     Indication: DRUG USE FOR UNKNOWN INDICATION
     Dosage: TOTAL DAILY DOSE: 440 MG  UNIT DOSE: 220 MG
     Route: 048
     Dates: start: 20070221
  2. ATIVAN [Suspect]
     Indication: PREOPERATIVE CARE
     Dates: start: 20070221
  3. BLOOD PRESSURE MEDICATION [Concomitant]
  4. SANDOSTATIN [Concomitant]
     Indication: NEOPLASM MALIGNANT

REACTIONS (1)
  - FEELING ABNORMAL [None]
